FAERS Safety Report 10503686 (Version 1)
Quarter: 2014Q4

REPORT INFORMATION
  Report Type: Spontaneous
  Country: US (occurrence: None)
  Receive Date: 20141007
  Receipt Date: 20141007
  Transmission Date: 20150528
  Serious: No
  Sender: FDA-Public Use
  Company Number: None

PATIENT
  Age: 63 Year
  Sex: Female
  Weight: 55.34 kg

DRUGS (1)
  1. AMLODIPINE [Suspect]
     Active Substance: AMLODIPINE BESYLATE
     Indication: BLOOD PRESSURE INCREASED
     Route: 048
     Dates: start: 20140825, end: 20141005

REACTIONS (11)
  - Headache [None]
  - Depression [None]
  - Somnolence [None]
  - Paraesthesia [None]
  - Fatigue [None]
  - Constipation [None]
  - Tooth extraction [None]
  - Abdominal pain upper [None]
  - Eructation [None]
  - Chest pain [None]
  - Post procedural haemorrhage [None]

NARRATIVE: CASE EVENT DATE: 20141005
